FAERS Safety Report 17402024 (Version 2)
Quarter: 2020Q1

REPORT INFORMATION
  Report Type: Spontaneous
  Country: US (occurrence: US)
  Receive Date: 20200211
  Receipt Date: 20200304
  Transmission Date: 20200409
  Serious: Yes (Hospitalization)
  Sender: FDA-Public Use
  Company Number: US-SUPERNUS PHARMACEUTICALS, INC.-2020SUP00012

PATIENT
  Age: 18 Year
  Sex: Male
  Weight: 62.59 kg

DRUGS (2)
  1. OXTELLAR XR [Suspect]
     Active Substance: OXCARBAZEPINE
     Indication: SEIZURE
     Dosage: 600 MG, 2X/DAY
     Route: 048
     Dates: start: 201903, end: 202001
  2. TYLENOL [Concomitant]
     Active Substance: ACETAMINOPHEN
     Dosage: UNK, AS NEEDED

REACTIONS (14)
  - Tongue biting [Recovering/Resolving]
  - Product dose omission [Recovered/Resolved]
  - Drug withdrawal convulsions [Recovered/Resolved]
  - Hypophagia [Recovering/Resolving]
  - Vomiting [Recovering/Resolving]
  - Unevaluable event [Unknown]
  - Abdominal pain upper [Recovering/Resolving]
  - Upper respiratory tract infection [Recovered/Resolved]
  - Tongue haemorrhage [Recovering/Resolving]
  - Urinary tract disorder [Recovering/Resolving]
  - Nausea [Recovering/Resolving]
  - Glossodynia [Recovering/Resolving]
  - Diarrhoea [Recovering/Resolving]
  - Influenza like illness [Recovering/Resolving]

NARRATIVE: CASE EVENT DATE: 202001
